FAERS Safety Report 8494125-1 (Version None)
Quarter: 2012Q3

REPORT INFORMATION
  Report Type: 
  Country: None (occurrence: None)
  Receive Date: 20120702
  Receipt Date: 20120702
  Transmission Date: 20120928
  Serious: Yes (Other)
  Sender: FDA-Public Use
  Company Number: None

PATIENT
  Sex: Female
  Weight: 63.5036 kg

DRUGS (1)
  1. VESICARE [Suspect]
     Indication: URINARY TRACT DISORDER
     Dosage: 5MG 1 X DAY  SHORT TIME
     Dates: start: 20120201

REACTIONS (3)
  - JOINT INJURY [None]
  - HEAD INJURY [None]
  - FALL [None]
